FAERS Safety Report 8906453 (Version 5)
Quarter: 2013Q2

REPORT INFORMATION
  Report Type: Spontaneous
  Country: US (occurrence: None)
  Receive Date: 20121108
  Receipt Date: 20130401
  Transmission Date: 20140414
  Serious: Yes (Hospitalization, Other)
  Sender: FDA-Public Use
  Company Number: 2012SGN00492

PATIENT
  Age: 28 Year
  Sex: Female

DRUGS (17)
  1. ADCETRIS [Suspect]
     Indication: HODGKIN^S DISEASE
     Dosage: 1.8MG/KG, SINGLE, INTRAVENOUS
     Route: 042
     Dates: start: 20120820, end: 20120820
  2. MIRENA (LEVONORGESTREL) [Concomitant]
  3. ROXICODONE (OXYCODONE HYDROCHLORIDE) [Concomitant]
  4. OXYCTONIN (OXYCODONE HYDROCHLORIDE) [Concomitant]
  5. MAG-OX (MAGNESIUM OXIDE) [Concomitant]
  6. KLONOPIN (CLONAZEPAM) [Concomitant]
  7. LYRICA (PREGABALIN) [Concomitant]
  8. LEXAPRO (ESCITALOPRAM OXALATE) [Concomitant]
  9. NOXAFIL (POSACONAZOLE) [Concomitant]
  10. ZOVIRAX (ACICLOVIR) [Concomitant]
  11. CENESTIN (ESTROGENS CONJUGATED) [Concomitant]
  12. LEVAQUIN (LEVOFLOXACIN) [Concomitant]
  13. PHOSLO (CALCIUM ACETATE) [Concomitant]
  14. VAGIFEM (ESTRADIOL) [Concomitant]
  15. CHOLECALCIFEROL (CHOLECALCIFEROL) [Concomitant]
  16. ASCORBIC ACID (ASCORBIC ACID) [Concomitant]
  17. LIDODERM (LIDOCAINE) [Concomitant]

REACTIONS (6)
  - Hyperglycaemia [None]
  - Hyperaesthesia [None]
  - Pain [None]
  - Clostridium difficile colitis [None]
  - Depression [None]
  - Neuropathy peripheral [None]
